FAERS Safety Report 21921028 (Version 1)
Quarter: 2023Q1

REPORT INFORMATION
  Report Type: Spontaneous
  Country: US (occurrence: None)
  Receive Date: 20230127
  Receipt Date: 20230127
  Transmission Date: 20230417
  Serious: Yes (Other)
  Sender: FDA-Public Use
  Company Number: None

PATIENT
  Age: 54 Year
  Sex: Female

DRUGS (1)
  1. BUPROPION\METHYLCOBALAMIN\NALTREXONE\PHENTERMINE\TOPIRAMATE [Suspect]
     Active Substance: BUPROPION\METHYLCOBALAMIN\NALTREXONE\PHENTERMINE\TOPIRAMATE
     Indication: Obesity
     Dosage: FREQUENCY : DAILY;?
     Route: 048
     Dates: start: 20230125, end: 20230125

REACTIONS (2)
  - Anxiety [None]
  - Pain in extremity [None]

NARRATIVE: CASE EVENT DATE: 20230125
